FAERS Safety Report 6151951-1 (Version None)
Quarter: 2009Q2

REPORT INFORMATION
  Report Type: 
  Country: None (occurrence: None)
  Receive Date: 20090410
  Receipt Date: 20090408
  Transmission Date: 20091009
  Serious: Yes (Death)
  Sender: FDA-Public Use
  Company Number: US-GILEAD-2009-0021369

PATIENT
  Sex: Female

DRUGS (12)
  1. LETAIRIS [Suspect]
     Indication: PULMONARY ARTERIAL HYPERTENSION
     Route: 048
     Dates: start: 20090225, end: 20090407
  2. REVATIO [Concomitant]
  3. LASIX [Concomitant]
  4. HUMULIN N [Concomitant]
  5. ZOCOR [Concomitant]
  6. XOPENEX [Concomitant]
  7. PERFOROMIST [Concomitant]
  8. FLONASE [Concomitant]
  9. PREDNISONE [Concomitant]
  10. BUDESONIDE MICRONIZED P [Concomitant]
  11. PROTONIX [Concomitant]
  12. REGLAN [Concomitant]

REACTIONS (1)
  - NON-SMALL CELL LUNG CANCER STAGE IV [None]
